FAERS Safety Report 23353140 (Version 1)
Quarter: 2023Q4

REPORT INFORMATION
  Report Type: Spontaneous
  Country: US (occurrence: US)
  Receive Date: 20231230
  Receipt Date: 20231230
  Transmission Date: 20240109
  Serious: No
  Sender: FDA-Public Use
  Company Number: US-GLAXOSMITHKLINE-US2023AMR179184

PATIENT
  Age: 70 Year
  Sex: Female
  Weight: 134 kg

DRUGS (3)
  1. ZEJULA [Suspect]
     Active Substance: NIRAPARIB
     Indication: Ovarian cancer
     Dosage: 200 MG, QD
     Route: 048
     Dates: start: 20231214, end: 20231215
  2. BENADRYL [Suspect]
     Active Substance: DIPHENHYDRAMINE HYDROCHLORIDE
     Indication: Product used for unknown indication
     Dosage: UNK
     Dates: start: 20231216
  3. EPINEPHRINE [Concomitant]
     Active Substance: EPINEPHRINE
     Indication: Product used for unknown indication
     Dosage: UNK

REACTIONS (7)
  - Swollen tongue [Recovering/Resolving]
  - Speech disorder [Recovering/Resolving]
  - Dyspnoea [Recovering/Resolving]
  - Blood magnesium decreased [Recovering/Resolving]
  - Blood potassium decreased [Recovering/Resolving]
  - Blood calcium decreased [Recovering/Resolving]
  - Stomatitis [Recovering/Resolving]

NARRATIVE: CASE EVENT DATE: 20231216
